FAERS Safety Report 9350793 (Version 1)
Quarter: 2013Q2

REPORT INFORMATION
  Report Type: Spontaneous
  Country: US (occurrence: US)
  Receive Date: 20130617
  Receipt Date: 20130617
  Transmission Date: 20140414
  Serious: No
  Sender: FDA-Public Use
  Company Number: US-JNJFOC-20130512917

PATIENT
  Age: 34 Year
  Sex: Male

DRUGS (6)
  1. INVEGA [Suspect]
     Indication: POST-TRAUMATIC STRESS DISORDER
     Route: 048
     Dates: start: 2013, end: 20130507
  2. INVEGA [Suspect]
     Indication: POST-TRAUMATIC STRESS DISORDER
     Route: 048
     Dates: start: 20130507
  3. INVEGA [Suspect]
     Indication: BIPOLAR DISORDER
     Route: 048
     Dates: start: 20130507
  4. INVEGA [Suspect]
     Indication: BIPOLAR DISORDER
     Route: 048
     Dates: start: 2013, end: 20130507
  5. SAPHRIS [Concomitant]
     Indication: POST-TRAUMATIC STRESS DISORDER
     Route: 065
  6. SAPHRIS [Concomitant]
     Indication: BIPOLAR DISORDER
     Route: 065

REACTIONS (5)
  - Confusional state [Not Recovered/Not Resolved]
  - Anxiety [Not Recovered/Not Resolved]
  - Anger [Not Recovered/Not Resolved]
  - Feeling abnormal [Not Recovered/Not Resolved]
  - Drug ineffective [Unknown]
